FAERS Safety Report 9054271 (Version 1)
Quarter: 2013Q1

REPORT INFORMATION
  Report Type: Report from Study
  Country: IT (occurrence: IT)
  Receive Date: 20130208
  Receipt Date: 20130208
  Transmission Date: 20140127
  Serious: Yes (Other)
  Sender: FDA-Public Use
  Company Number: IT-GLAXOSMITHKLINE-B0863828A

PATIENT
  Age: 54 None
  Sex: Female
  Weight: 46 kg

DRUGS (3)
  1. PAZOPANIB [Suspect]
     Indication: SARCOMA
     Dosage: 800MG PER DAY
     Route: 048
     Dates: start: 20120925, end: 20121023
  2. CARDIOASPIRIN [Concomitant]
     Indication: THROMBOCYTOSIS
     Dosage: 100MG PER DAY
     Route: 048
     Dates: start: 2005
  3. PARACETAMOL [Concomitant]
     Indication: ABDOMINAL PAIN
     Route: 048
     Dates: start: 20121023, end: 20121116

REACTIONS (5)
  - Decreased appetite [Recovered/Resolved]
  - Abdominal pain [Recovered/Resolved]
  - Diarrhoea [Recovered/Resolved]
  - Hypertension [Recovered/Resolved]
  - Weight decreased [Recovering/Resolving]
